FAERS Safety Report 13817798 (Version 1)
Quarter: 2017Q3

REPORT INFORMATION
  Report Type: Spontaneous
  Country: KR (occurrence: KR)
  Receive Date: 20170731
  Receipt Date: 20170731
  Transmission Date: 20171127
  Serious: Yes (Other)
  Sender: FDA-Public Use
  Company Number: PHHY2017KR110192

PATIENT
  Sex: Male

DRUGS (8)
  1. ALCAINE [Concomitant]
     Active Substance: PROPARACAINE HYDROCHLORIDE
     Indication: PREOPERATIVE CARE
     Route: 047
  2. ELEVO [Concomitant]
     Indication: POSTOPERATIVE CARE
     Route: 047
  3. BSS [Suspect]
     Active Substance: CALCIUM CHLORIDE\MAGNESIUM CHLORIDE\POTASSIUM CHLORIDE\SODIUM ACETATE\SODIUM CHLORIDE\SODIUM CITRATE
     Indication: EYE IRRIGATION
     Dosage: UNK
     Route: 047
     Dates: start: 20170713
  4. MYDRIN [Concomitant]
     Indication: PREOPERATIVE CARE
  5. ZEPHANON [Concomitant]
     Indication: PREOPERATIVE CARE
     Route: 047
  6. PROVISC [Concomitant]
     Indication: INTRAOPERATIVE CARE
     Route: 047
  7. MYDRIN [Concomitant]
     Indication: POSTOPERATIVE CARE
     Route: 047
  8. POVIDONE-IODINE. [Concomitant]
     Active Substance: POVIDONE-IODINE
     Indication: PREOPERATIVE CARE
     Route: 047

REACTIONS (3)
  - Toxic anterior segment syndrome [Not Recovered/Not Resolved]
  - Anterior chamber inflammation [Not Recovered/Not Resolved]
  - Eye pain [Not Recovered/Not Resolved]

NARRATIVE: CASE EVENT DATE: 2017
